FAERS Safety Report 18010881 (Version 1)
Quarter: 2020Q3

REPORT INFORMATION
  Report Type: Spontaneous
  Country: US (occurrence: US)
  Receive Date: 20200710
  Receipt Date: 20200710
  Transmission Date: 20201103
  Serious: Yes (Other)
  Sender: FDA-Public Use
  Company Number: NVSC2020US182017

PATIENT
  Age: 65 Year
  Sex: Male

DRUGS (3)
  1. NILOTINIB [Suspect]
     Active Substance: NILOTINIB
     Indication: CHRONIC MYELOID LEUKAEMIA
     Dosage: UNK
     Route: 065
     Dates: start: 20060601
  2. DASATINIB. [Suspect]
     Active Substance: DASATINIB
     Indication: CHRONIC MYELOID LEUKAEMIA
     Dosage: UNK
     Route: 065
     Dates: start: 20101214, end: 20110125
  3. NILOTINIB [Suspect]
     Active Substance: NILOTINIB
     Dosage: UNK
     Route: 065
     Dates: end: 20200622

REACTIONS (7)
  - Renal impairment [Unknown]
  - Cytogenetic analysis abnormal [Not Recovered/Not Resolved]
  - Withdrawal syndrome [Unknown]
  - Drug intolerance [Unknown]
  - Pulmonary oedema [Unknown]
  - Musculoskeletal discomfort [Unknown]
  - Rash [Unknown]
